FAERS Safety Report 16227077 (Version 2)
Quarter: 2019Q2

REPORT INFORMATION
  Report Type: Report from Study
  Country: None (occurrence: US)
  Receive Date: 20190423
  Receipt Date: 20190516
  Transmission Date: 20190711
  Serious: Yes (Hospitalization, Other)
  Sender: FDA-Public Use
  Company Number: US-ABBVIE-19K-163-2749505-00

PATIENT
  Sex: Male

DRUGS (9)
  1. RITUXIMAB. [Suspect]
     Active Substance: RITUXIMAB
     Indication: CHRONIC LYMPHOCYTIC LEUKAEMIA
     Route: 041
     Dates: start: 201611
  2. PREDNISONE. [Concomitant]
     Active Substance: PREDNISONE
     Indication: PRODUCT USED FOR UNKNOWN INDICATION
  3. VENETOCLAX. [Suspect]
     Active Substance: VENETOCLAX
     Indication: COLITIS ULCERATIVE
  4. ENTYVIO [Concomitant]
     Active Substance: VEDOLIZUMAB
     Indication: COLITIS ULCERATIVE
  5. HUMIRA [Suspect]
     Active Substance: ADALIMUMAB
     Indication: CHRONIC LYMPHOCYTIC LEUKAEMIA
  6. HUMIRA [Suspect]
     Active Substance: ADALIMUMAB
     Indication: COLITIS ULCERATIVE
     Route: 058
     Dates: start: 2009, end: 2013
  7. RITUXIMAB. [Suspect]
     Active Substance: RITUXIMAB
     Route: 041
     Dates: start: 201806
  8. BENDAMUSTINE [Concomitant]
     Active Substance: BENDAMUSTINE
     Indication: CHRONIC LYMPHOCYTIC LEUKAEMIA
  9. VENETOCLAX. [Suspect]
     Active Substance: VENETOCLAX
     Indication: CHRONIC LYMPHOCYTIC LEUKAEMIA
     Route: 048
     Dates: start: 20180610

REACTIONS (21)
  - Oropharyngeal pain [Unknown]
  - Hormone-refractory prostate cancer [Not Recovered/Not Resolved]
  - Blood glucose increased [Not Recovered/Not Resolved]
  - Lymphocyte count decreased [Not Recovered/Not Resolved]
  - Nausea [Recovered/Resolved]
  - Chronic lymphocytic leukaemia [Unknown]
  - Squamous cell carcinoma of skin [Unknown]
  - Malaise [Recovered/Resolved]
  - Muscular weakness [Unknown]
  - Prostate cancer stage IV [Not Recovered/Not Resolved]
  - Skin mass [Not Recovered/Not Resolved]
  - Axillary mass [Recovered/Resolved]
  - Nasopharyngitis [Not Recovered/Not Resolved]
  - Bursitis [Unknown]
  - Prostatic specific antigen increased [Not Recovered/Not Resolved]
  - Lymphadenopathy [Recovered/Resolved]
  - Neutrophil count increased [Not Recovered/Not Resolved]
  - Fungal skin infection [Recovered/Resolved]
  - Dyspnoea [Unknown]
  - Haemoglobin decreased [Recovered/Resolved]
  - Myalgia [Unknown]

NARRATIVE: CASE EVENT DATE: 2009
